FAERS Safety Report 15703386 (Version 1)
Quarter: 2018Q4

REPORT INFORMATION
  Report Type: Spontaneous
  Country: US (occurrence: US)
  Receive Date: 20181210
  Receipt Date: 20181210
  Transmission Date: 20190205
  Serious: No
  Sender: FDA-Public Use
  Company Number: US-KYOWAKIRIN-2017BKK003361

PATIENT

DRUGS (2)
  1. SANCUSO [Suspect]
     Active Substance: GRANISETRON
     Indication: PROCEDURAL NAUSEA
  2. SANCUSO [Suspect]
     Active Substance: GRANISETRON
     Indication: PROCEDURAL DIZZINESS
     Dosage: 1 DF, 1X/WEEK
     Route: 061
     Dates: start: 201707, end: 201708

REACTIONS (1)
  - Product use in unapproved indication [Recovered/Resolved]

NARRATIVE: CASE EVENT DATE: 201707
